FAERS Safety Report 5648260-3 (Version None)
Quarter: 2008Q1

REPORT INFORMATION
  Report Type: 
  Country: None (occurrence: None)
  Receive Date: 20080304
  Receipt Date: 20080228
  Transmission Date: 20080703
  Serious: Yes (Other)
  Sender: FDA-Public Use
  Company Number: KR-BRISTOL-MYERS SQUIBB COMPANY-14089320

PATIENT
  Age: 38 Year
  Sex: Male

DRUGS (2)
  1. CISPLATIN [Suspect]
     Indication: METASTATIC GASTRIC CANCER
     Dosage: ON DAY 1 OF 3 WEEK CYCLE
     Route: 042
  2. CAPECITABINE [Suspect]
     Dosage: TWICE DAILY ON DAYS 1-14
     Route: 048

REACTIONS (1)
  - TUMOUR LYSIS SYNDROME [None]
